FAERS Safety Report 5926999-X (Version None)
Quarter: 2008Q4

REPORT INFORMATION
  Report Type: 
  Country: None (occurrence: None)
  Receive Date: 20081022
  Receipt Date: 20080519
  Transmission Date: 20090506
  Serious: Yes (Death)
  Sender: FDA-Public Use
  Company Number: GB-WYE-G02388708

PATIENT
  Age: 37 Year
  Sex: Male

DRUGS (1)
  1. ROBITUSSIN DRY COUGH [Suspect]
     Dosage: UNKNOWN

REACTIONS (2)
  - ACCIDENTAL OVERDOSE [None]
  - RESPIRATORY FAILURE [None]
